FAERS Safety Report 18403563 (Version 1)
Quarter: 2020Q4

REPORT INFORMATION
  Report Type: Spontaneous
  Country: BE (occurrence: BE)
  Receive Date: 20201020
  Receipt Date: 20201020
  Transmission Date: 20210114
  Serious: Yes (Other)
  Sender: FDA-Public Use
  Company Number: BE-ALKEM LABORATORIES LIMITED-BE-ALKEM-2020-06681

PATIENT
  Age: 68 Year
  Sex: Female

DRUGS (1)
  1. AZATHIOPRINE. [Suspect]
     Active Substance: AZATHIOPRINE
     Indication: CROHN^S DISEASE
     Dosage: 150 MILLIGRAM, QD
     Route: 065
     Dates: start: 1997

REACTIONS (5)
  - Epstein-Barr virus test positive [Recovered/Resolved]
  - Pulmonary granuloma [Recovered/Resolved]
  - Pulmonary tuberculosis [Recovered/Resolved]
  - Lymphoproliferative disorder [Recovered/Resolved]
  - Angiocentric lymphoma [Recovered/Resolved]
